FAERS Safety Report 9850043 (Version 1)
Quarter: 2014Q1

REPORT INFORMATION
  Report Type: Spontaneous
  Country: US (occurrence: None)
  Receive Date: 20140122
  Receipt Date: 20140122
  Transmission Date: 20141002
  Serious: Yes (Other)
  Sender: FDA-Public Use
  Company Number: 2014-00005

PATIENT
  Age: 70 Year
  Sex: Female
  Weight: 46.72 kg

DRUGS (4)
  1. ZICAM COLD REMEDY RAPIDMELTS [Suspect]
     Indication: NASOPHARYNGITIS
  2. ZICAM COLD REMEDY RAPIDMELTS [Suspect]
     Indication: INFLUENZA
  3. LOSARTAN [Concomitant]
  4. AMLODIPINE [Concomitant]

REACTIONS (2)
  - Balance disorder [None]
  - Hypertension [None]
